FAERS Safety Report 5888690-8 (Version None)
Quarter: 2008Q3

REPORT INFORMATION
  Report Type: 
  Country: None (occurrence: None)
  Receive Date: 20080917
  Receipt Date: 20080902
  Transmission Date: 20090109
  Serious: Yes (Hospitalization)
  Sender: FDA-Public Use
  Company Number: IDA-00130

PATIENT
  Age: 50 Year
  Sex: Female

DRUGS (3)
  1. PROPRANOLOL [Suspect]
     Dosage: 40 MG BID/ DOSE TEXT: 960 MG
     Route: 048
  2. OLANZAPINE [Suspect]
     Dosage: 20 MG DAILY/ DOSE TEXT: 600-700MG
     Route: 048
  3. DIAZEPAM [Suspect]
     Dosage: 2 MG PRN/ DOSE TEXT: 20 MG
     Route: 048

REACTIONS (7)
  - AREFLEXIA [None]
  - BODY TEMPERATURE DECREASED [None]
  - DEPRESSED LEVEL OF CONSCIOUSNESS [None]
  - DRUG TOXICITY [None]
  - MULTIPLE DRUG OVERDOSE INTENTIONAL [None]
  - RESPIRATORY RATE INCREASED [None]
  - UNRESPONSIVE TO STIMULI [None]
